FAERS Safety Report 9800134 (Version 2)
Quarter: 2014Q1

REPORT INFORMATION
  Report Type: Spontaneous
  Country: US (occurrence: US)
  Receive Date: 20140106
  Receipt Date: 20140106
  Transmission Date: 20141002
  Serious: No
  Sender: FDA-Public Use
  Company Number: US-GILEAD-2010-0032437

PATIENT
  Age: 70 Year
  Sex: Female
  Weight: 122.47 kg

DRUGS (13)
  1. LETAIRIS [Suspect]
     Indication: PULMONARY HYPERTENSION
     Route: 048
     Dates: start: 20100922
  2. ADCIRCA [Concomitant]
  3. TENORMIN [Concomitant]
  4. LASIX [Concomitant]
  5. COUMADIN [Concomitant]
  6. POT CHLORIDE [Concomitant]
  7. ALBUTEROL [Concomitant]
  8. ULTRAM [Concomitant]
  9. LEVOXYL [Concomitant]
  10. FOSAMAX [Concomitant]
  11. KLONOPIN [Concomitant]
  12. LOTRISONE [Concomitant]
  13. TRIAMCINOLONE [Concomitant]

REACTIONS (1)
  - Nasal congestion [Unknown]
